FAERS Safety Report 17579660 (Version 2)
Quarter: 2020Q3

REPORT INFORMATION
  Report Type: Spontaneous
  Country: US (occurrence: US)
  Receive Date: 20200325
  Receipt Date: 20200911
  Transmission Date: 20201102
  Serious: Yes (Other)
  Sender: FDA-Public Use
  Company Number: US-GILEAD-2020-0456015

PATIENT
  Age: 43 Year
  Sex: Male
  Weight: 77 kg

DRUGS (28)
  1. ZERIT [Concomitant]
     Active Substance: STAVUDINE
  2. VIRAMUNE [Concomitant]
     Active Substance: NEVIRAPINE
  3. AMICAR [Concomitant]
     Active Substance: AMINOCAPROIC ACID
  4. FUZEON [Concomitant]
     Active Substance: ENFUVIRTIDE
  5. INVIRASE [Concomitant]
     Active Substance: SAQUINAVIR MESYLATE
  6. NORVIR [Concomitant]
     Active Substance: RITONAVIR
  7. DAPSONE. [Concomitant]
     Active Substance: DAPSONE
  8. DIFLUCAN [Concomitant]
     Active Substance: FLUCONAZOLE
  9. GABAPENTIN. [Concomitant]
     Active Substance: GABAPENTIN
  10. TRUVADA [Suspect]
     Active Substance: EMTRICITABINE\TENOFOVIR DISOPROXIL FUMARATE
     Indication: HIV INFECTION
     Dosage: UNK
     Route: 048
     Dates: start: 2012
  11. DESCOVY [Concomitant]
     Active Substance: EMTRICITABINE\TENOFOVIR ALAFENAMIDE FUMARATE
  12. APTIVUS [Concomitant]
     Active Substance: TIPRANAVIR
  13. RETROVIR [Concomitant]
     Active Substance: ZIDOVUDINE
  14. FORTOVASE [Concomitant]
     Active Substance: SAQUINAVIR
  15. MEVACOR [Concomitant]
     Active Substance: LOVASTATIN
  16. MILK THISTLE LIVER TONIC [Concomitant]
  17. CRIXIVAN [Concomitant]
     Active Substance: INDINAVIR SULFATE
  18. EPIVIR [Concomitant]
     Active Substance: LAMIVUDINE
  19. INTELENCE [Concomitant]
     Active Substance: ETRAVIRINE
  20. MELOXICAM. [Concomitant]
     Active Substance: MELOXICAM
  21. ELOCTATE [Concomitant]
     Active Substance: (1-743)-(1638-2332)-BLOOD-COAGULATION FACTOR VIII (SYNTHETIC HUMAN) FUSION PROTEIN WITH IMMUNOGLOBULIN G1 (SYNTHETIC HUMAN FC DOMAIN FRAGMENT), (1444-6^),(1447-9^)-BIS(DISULFIDE) WITH IMMUNOGLOBULIN G1 (SYNTHETIC HUMAN FC DOMAIN FRAGMENT)
  22. PREVACID [Concomitant]
     Active Substance: LANSOPRAZOLE
  23. PREZISTA [Concomitant]
     Active Substance: DARUNAVIR ETHANOLATE
  24. TRUVADA [Suspect]
     Active Substance: EMTRICITABINE\TENOFOVIR DISOPROXIL FUMARATE
     Dosage: UNK
     Route: 048
     Dates: start: 20060424, end: 20160715
  25. VIDEX [Concomitant]
     Active Substance: DIDANOSINE
  26. VIRACEPT [Concomitant]
     Active Substance: NELFINAVIR MESYLATE
  27. ISENTRESS [Concomitant]
     Active Substance: RALTEGRAVIR POTASSIUM
  28. VITAFUSION MULTIVITES [Concomitant]

REACTIONS (10)
  - Anxiety [Not Recovered/Not Resolved]
  - Decreased activity [Not Recovered/Not Resolved]
  - Pain [Not Recovered/Not Resolved]
  - Emotional distress [Not Recovered/Not Resolved]
  - Depression [Not Recovered/Not Resolved]
  - Osteoporosis [Not Recovered/Not Resolved]
  - Economic problem [Unknown]
  - Anhedonia [Not Recovered/Not Resolved]
  - Chronic kidney disease [Not Recovered/Not Resolved]
  - Bone density decreased [Unknown]

NARRATIVE: CASE EVENT DATE: 201405
